FAERS Safety Report 24656349 (Version 1)
Quarter: 2024Q4

REPORT INFORMATION
  Report Type: Spontaneous
  Country: US (occurrence: US)
  Receive Date: 20241124
  Receipt Date: 20241124
  Transmission Date: 20250115
  Serious: No
  Sender: MERCK
  Company Number: US-009507513-2410USA013608

PATIENT
  Sex: Female
  Weight: 93 kg

DRUGS (18)
  1. WINREVAIR [Suspect]
     Active Substance: SOTATERCEPT-CSRK
     Indication: Product used for unknown indication
     Dosage: UNK
  2. TYVASO [Suspect]
     Active Substance: TREPROSTINIL
     Indication: Pulmonary arterial hypertension
     Dosage: 42 MICROGRAM, QID
     Dates: start: 2024
  3. TYVASO [Suspect]
     Active Substance: TREPROSTINIL
     Dosage: 54 MICROGRAM (9 BREATHS), QID
     Dates: start: 20240223
  4. DICLOFENAC SODIUM [Concomitant]
     Active Substance: DICLOFENAC SODIUM
  5. OMEPRAZOLE [Concomitant]
     Active Substance: OMEPRAZOLE
  6. JARDIANCE [Concomitant]
     Active Substance: EMPAGLIFLOZIN
  7. DRY EYES [Concomitant]
     Active Substance: MINERAL OIL\PETROLATUM
  8. CLINDAMYCIN HYDROCHLORIDE [Concomitant]
     Active Substance: CLINDAMYCIN HYDROCHLORIDE
  9. ASPIRIN [Concomitant]
     Active Substance: ASPIRIN
  10. ALLOPURINOL [Concomitant]
     Active Substance: ALLOPURINOL
  11. TADALAFIL [Concomitant]
     Active Substance: TADALAFIL
  12. TYLENOL ARTHRITIS PAIN [Concomitant]
     Active Substance: ACETAMINOPHEN
  13. BIOTIN [Concomitant]
     Active Substance: BIOTIN
  14. VITAMINS NOS [Concomitant]
     Active Substance: VITAMINS
  15. SPIRONOLACTONE [Concomitant]
     Active Substance: SPIRONOLACTONE
     Dosage: UNK
  16. OXYGEN [Concomitant]
     Active Substance: OXYGEN
  17. TORSEMIDE [Concomitant]
     Active Substance: TORSEMIDE
  18. VITAMIN D3 [Concomitant]
     Active Substance: CHOLECALCIFEROL

REACTIONS (1)
  - Laboratory test abnormal [Unknown]

NARRATIVE: CASE EVENT DATE: 20240101
